FAERS Safety Report 7985288-2 (Version None)
Quarter: 2011Q4

REPORT INFORMATION
  Report Type: 
  Country: None (occurrence: None)
  Receive Date: 20111216
  Receipt Date: 20111124
  Transmission Date: 20120403
  Serious: Yes (Hospitalization)
  Sender: FDA-Public Use
  Company Number: SE-ROCHE-1016112

PATIENT
  Sex: Female
  Weight: 98 kg

DRUGS (12)
  1. PACLITAXEL [Suspect]
     Indication: PRODUCT USED FOR UNKNOWN INDICATION
     Dosage: DATE OF LAST DOSE PRIOR TO SAE: 08/NOV/2011
     Route: 042
     Dates: start: 20111101, end: 20111115
  2. CARBOPLATIN [Suspect]
     Indication: PRODUCT USED FOR UNKNOWN INDICATION
     Dosage: DATE OF LAST DOSE PRIOR TO SAE: 01/NOV/2011
     Route: 042
     Dates: start: 20111101
  3. ENALAPRIL MALEATE [Concomitant]
     Dates: start: 20110925, end: 20111126
  4. AVASTIN [Suspect]
     Indication: PRODUCT USED FOR UNKNOWN INDICATION
     Dosage: DATE OF LAST DOSE PRIOR TO SAE: 01/NOV/2011
     Route: 042
     Dates: start: 20111101
  5. ACETAMINOPHEN [Concomitant]
  6. PRIMPERAN (SWEDEN) [Concomitant]
     Dates: start: 20111101
  7. LASIX [Concomitant]
     Dates: start: 20111031
  8. OMEPRAZOLE [Concomitant]
     Dates: start: 20111005
  9. FRAGMIN [Concomitant]
  10. ANDOLEX [Concomitant]
     Dates: start: 20111108
  11. LAXOBERAL [Concomitant]
     Dates: start: 20111108
  12. TRAMADOL HCL [Concomitant]

REACTIONS (2)
  - BLOOD CREATININE INCREASED [None]
  - FATIGUE [None]
